FAERS Safety Report 12362291 (Version 1)
Quarter: 2016Q2

REPORT INFORMATION
  Report Type: Spontaneous
  Country: US (occurrence: US)
  Receive Date: 20160512
  Receipt Date: 20160512
  Transmission Date: 20160815
  Serious: No
  Sender: FDA-Public Use
  Company Number: US-UCBSA-2015037361

PATIENT
  Sex: Female

DRUGS (8)
  1. MAGNESIUM [Concomitant]
     Active Substance: MAGNESIUM
  2. FOLIC ACID. [Concomitant]
     Active Substance: FOLIC ACID
  3. PLAQUENIL [Concomitant]
     Active Substance: HYDROXYCHLOROQUINE SULFATE
  4. FISH OIL [Concomitant]
     Active Substance: FISH OIL
  5. ARAVA [Concomitant]
     Active Substance: LEFLUNOMIDE
  6. CIMZIA [Suspect]
     Active Substance: CERTOLIZUMAB PEGOL
     Indication: RHEUMATOID ARTHRITIS
     Dosage: 400 MG, MONTHLY (QM)
  7. CELEBREX [Concomitant]
     Active Substance: CELECOXIB
  8. CHLORPHENAMINE W/PARACETAMOL/PHENYLEPHRINE/ [Concomitant]

REACTIONS (1)
  - Injection site pain [Not Recovered/Not Resolved]
